FAERS Safety Report 7813053-5 (Version None)
Quarter: 2011Q4

REPORT INFORMATION
  Report Type: 
  Country: None (occurrence: None)
  Receive Date: 20111013
  Receipt Date: 20110930
  Transmission Date: 20120403
  Serious: Yes (Hospitalization)
  Sender: FDA-Public Use
  Company Number: PHHY2011US58411

PATIENT
  Sex: Female
  Weight: 45 kg

DRUGS (17)
  1. LOSARTAN POTASSIUM [Concomitant]
     Dosage: UNK UKN, UNK
  2. PROGRAF [Concomitant]
     Route: 048
  3. MYFORTIC [Suspect]
     Dosage: 360 MG
     Route: 048
  4. CLONIDINE [Concomitant]
     Dosage: UNK UKN, UNK
  5. AMLODIPINE [Concomitant]
     Dosage: UNK UKN, UNK
  6. FUROSEMIDE [Concomitant]
     Dosage: UNK UKN, UNK
  7. METOPROLOL TARTRATE [Concomitant]
     Dosage: UNK UKN, UNK
  8. SIMVASTATIN [Concomitant]
     Dosage: UNK UKN, UNK
  9. GABAPENTIN [Concomitant]
     Dosage: UNK UKN, UNK
  10. MAGNESIUM OXIDE [Concomitant]
     Dosage: UNK UKN, UNK
  11. PREDNISONE [Concomitant]
     Dosage: UNK UKN, UNK
  12. OMEPRAZOLE [Concomitant]
     Dosage: UNK UKN, UNK
  13. MYFORTIC [Suspect]
     Indication: RENAL TRANSPLANT
     Dosage: 360 MG, TID
     Route: 048
     Dates: start: 20110330
  14. IRON [Concomitant]
     Dosage: UNK UKN, UNK
  15. INSULIN [Concomitant]
     Dosage: UNK UKN, UNK
  16. CITALOPRAM [Concomitant]
     Dosage: UNK UKN, UNK
  17. CHOLECALCIFEROL [Concomitant]
     Dosage: UNK UKN, UNK

REACTIONS (4)
  - RENAL FAILURE ACUTE [None]
  - URINE ANALYSIS ABNORMAL [None]
  - RENAL DISORDER [None]
  - HYDRONEPHROSIS [None]
